FAERS Safety Report 9107329 (Version 1)
Quarter: 2013Q1

REPORT INFORMATION
  Report Type: Spontaneous
  Country: US (occurrence: US)
  Receive Date: 20130221
  Receipt Date: 20130221
  Transmission Date: 20140127
  Serious: No
  Sender: FDA-Public Use
  Company Number: US-009507513-1302USA008705

PATIENT
  Sex: Male

DRUGS (3)
  1. PROVENTIL [Suspect]
     Indication: BRONCHITIS
     Dosage: 2 DF, Q4H
     Route: 055
     Dates: start: 201301
  2. [THERAPY UNSPECIFIED] [Concomitant]
     Indication: DIABETES MELLITUS
  3. [THERAPY UNSPECIFIED] [Concomitant]
     Indication: PAIN

REACTIONS (4)
  - Dyspnoea [Not Recovered/Not Resolved]
  - Off label use [Unknown]
  - Product quality issue [Unknown]
  - Drug dose omission [Unknown]
